FAERS Safety Report 25931206 (Version 1)
Quarter: 2025Q4

REPORT INFORMATION
  Report Type: Spontaneous
  Country: US (occurrence: None)
  Receive Date: 20251016
  Receipt Date: 20251016
  Transmission Date: 20260117
  Serious: Yes (Hospitalization)
  Sender: FDA-CTU
  Company Number: None

PATIENT
  Sex: Male

DRUGS (3)
  1. POMALYST [Suspect]
     Active Substance: POMALIDOMIDE
     Indication: Kaposi^s sarcoma
     Dosage: OTHER FREQUENCY : DAYS 1-21 OF EACH 28 DAY CYCLE TAKE WITHOUT FOOD AT LEAST 2 HOURS BEFORE OR AFTER MEALS.;?
     Route: 048
     Dates: start: 20240828
  2. KEPPRA [Suspect]
     Active Substance: LEVETIRACETAM
  3. TESTOSTERONE CYPIONATE [Concomitant]
     Active Substance: TESTOSTERONE CYPIONATE

REACTIONS (2)
  - Drug hypersensitivity [None]
  - Intentional dose omission [None]
